FAERS Safety Report 4821269-5 (Version None)
Quarter: 2005Q4

REPORT INFORMATION
  Report Type: 
  Country: None (occurrence: None)
  Receive Date: 20051107
  Receipt Date: 20050209
  Transmission Date: 20060501
  Serious: Yes (Other)
  Sender: FDA-Public Use
  Company Number: PHFR2005GB00851

PATIENT
  Age: 48 Year
  Sex: Female

DRUGS (8)
  1. CLOZARIL [Suspect]
     Indication: SCHIZOPHRENIA
     Dosage: 400MG/DAY
     Route: 048
     Dates: start: 20050114, end: 20050207
  2. CLOZARIL [Suspect]
     Dosage: 75MG MANE + 62.5MG NOCTE
     Route: 048
     Dates: start: 20050824, end: 20050921
  3. DEPAKOTE [Concomitant]
     Indication: SCHIZOPHRENIA
     Dosage: 1000MG/DAY
     Route: 048
     Dates: start: 20041208, end: 20050421
  4. ASPIRIN [Concomitant]
     Indication: ISCHAEMIA
     Dosage: 75MG/DAY
     Route: 048
     Dates: start: 20050129
  5. CLOPIDOGREL BISULFATE [Concomitant]
     Indication: ISCHAEMIA
     Route: 048
     Dates: start: 20050129, end: 20050215
  6. RISPERIDONE [Concomitant]
     Dosage: UNK, UNK
     Route: 065
  7. REGURIN [Concomitant]
     Dosage: 20 MG, BID
     Route: 065
  8. LAMOTRIGINE [Concomitant]
     Dosage: 200 MG, BID
     Route: 065
     Dates: end: 20050923

REACTIONS (15)
  - AGRANULOCYTOSIS [None]
  - BODY TEMPERATURE INCREASED [None]
  - CARDIAC DISORDER [None]
  - CHEST PAIN [None]
  - CREPITATIONS [None]
  - DIARRHOEA [None]
  - ELECTROCARDIOGRAM ABNORMAL [None]
  - ELECTROCARDIOGRAM ST SEGMENT DEPRESSION [None]
  - INFECTION [None]
  - NEUTROPENIA [None]
  - PLATELET COUNT INCREASED [None]
  - RASH [None]
  - RED BLOOD CELL COUNT DECREASED [None]
  - WHEEZING [None]
  - WHITE BLOOD CELL COUNT DECREASED [None]
